FAERS Safety Report 6671248-0 (Version None)
Quarter: 2010Q2

REPORT INFORMATION
  Report Type: 
  Country: None (occurrence: None)
  Receive Date: 20100407
  Receipt Date: 20100324
  Transmission Date: 20101027
  Serious: No
  Sender: FDA-Public Use
  Company Number: US-B.I. PHARMACEUTICALS,INC./RIDGEFIELD-2010-BP-03453BP

PATIENT
  Age: 80 Year
  Sex: Female

DRUGS (2)
  1. MIRAPEX [Suspect]
     Dosage: 0.375 MG
     Route: 048
  2. MIRAPEX [Concomitant]

REACTIONS (1)
  - HALLUCINATION [None]
